FAERS Safety Report 18059764 (Version 1)
Quarter: 2020Q3

REPORT INFORMATION
  Report Type: Spontaneous
  Country: US (occurrence: US)
  Receive Date: 20200723
  Receipt Date: 20200723
  Transmission Date: 20201103
  Serious: Yes (Death)
  Sender: FDA-Public Use
  Company Number: None

PATIENT
  Age: 37 Year
  Sex: Female

DRUGS (4)
  1. DEXAMETHASONE. [Concomitant]
     Active Substance: DEXAMETHASONE
  2. LEVETIRACETAM. [Concomitant]
     Active Substance: LEVETIRACETAM
  3. ETOPOSIDE. [Suspect]
     Active Substance: ETOPOSIDE
     Indication: CARCINOID TUMOUR
     Route: 048
     Dates: start: 20200401, end: 20200720
  4. ETOPOSIDE. [Suspect]
     Active Substance: ETOPOSIDE
     Indication: NEOPLASM MALIGNANT
     Route: 048
     Dates: start: 20200401, end: 20200720

REACTIONS (1)
  - Death [None]

NARRATIVE: CASE EVENT DATE: 20200720
